FAERS Safety Report 4620123-1 (Version None)
Quarter: 2005Q1

REPORT INFORMATION
  Report Type: 
  Country: None (occurrence: None)
  Receive Date: 20050328
  Receipt Date: 20050321
  Transmission Date: 20050727
  Serious: Yes (Hospitalization)
  Sender: FDA-Public Use
  Company Number: DE-BRISTOL-MYERS SQUIBB COMPANY-12906665

PATIENT
  Age: 64 Year
  Sex: Female

DRUGS (6)
  1. CYCLOPHOSPHAMIDE [Suspect]
     Indication: BREAST CANCER
     Route: 042
     Dates: start: 20040812, end: 20040923
  2. TAXOL [Suspect]
     Indication: BREAST CANCER
     Route: 042
     Dates: start: 20041007, end: 20041216
  3. EPIRUBICIN [Suspect]
     Indication: BREAST CANCER
     Route: 042
     Dates: start: 20040812, end: 20040923
  4. CAPECITABINE [Suspect]
     Indication: BREAST CANCER
     Route: 048
     Dates: start: 20041007, end: 20041116
  5. BONDRONAT [Suspect]
     Indication: BREAST CANCER
     Route: 048
     Dates: start: 20050101
  6. EPOETIN ALFA [Suspect]
     Indication: BREAST CANCER
     Dosage: 30,000 I.E.
     Route: 058
     Dates: start: 20040813, end: 20041216

REACTIONS (3)
  - BREAST INFECTION [None]
  - NEUTROPENIA [None]
  - THROMBOSIS [None]
